FAERS Safety Report 4334996-3 (Version None)
Quarter: 2004Q2

REPORT INFORMATION
  Report Type: 
  Country: None (occurrence: None)
  Receive Date: 20040408
  Receipt Date: 20040323
  Transmission Date: 20050107
  Serious: Yes (Hospitalization)
  Sender: FDA-Public Use
  Company Number: JP-ROCHE-362674

PATIENT
  Age: 24 Year
  Sex: Female
  Weight: 45 kg

DRUGS (3)
  1. TAMIFLU [Suspect]
     Route: 048
     Dates: start: 20040227, end: 20040227
  2. ANYRUME [Suspect]
     Indication: PYREXIA
     Route: 048
     Dates: start: 20040227, end: 20040227
  3. CHINESE HERBAL MEDICINE [Suspect]
     Dosage: NAME REPORTED AS MAOHTO.
     Route: 048
     Dates: start: 20040227, end: 20040227

REACTIONS (2)
  - ANAPHYLACTIC SHOCK [None]
  - LYMPHOCYTE STIMULATION TEST POSITIVE [None]
